FAERS Safety Report 21679586 (Version 2)
Quarter: 2022Q4

REPORT INFORMATION
  Report Type: Spontaneous
  Country: US (occurrence: US)
  Receive Date: 20221205
  Receipt Date: 20221218
  Transmission Date: 20230112
  Serious: Yes (Other)
  Sender: FDA-Public Use
  Company Number: US-MLMSERVICE-20221115-3919997-1

PATIENT
  Age: 42 Year
  Sex: Male

DRUGS (2)
  1. MOXIFLOXACIN [Suspect]
     Active Substance: MOXIFLOXACIN
     Indication: Endophthalmitis
     Dosage: APPROXIMATELY 0.2 ML UNDILUTED
  2. MOXIFLOXACIN [Suspect]
     Active Substance: MOXIFLOXACIN
     Indication: Prophylaxis
     Dosage: APPROXIMATELY 0.1 ML

REACTIONS (5)
  - Toxic anterior segment syndrome [Recovering/Resolving]
  - Corneal oedema [Recovering/Resolving]
  - Incorrect route of product administration [Recovered/Resolved]
  - Corneal decompensation [Unknown]
  - Off label use [Unknown]
